FAERS Safety Report 4578802-0 (Version None)
Quarter: 2005Q1

REPORT INFORMATION
  Report Type: 
  Country: None (occurrence: None)
  Receive Date: 20050209
  Receipt Date: 20050209
  Transmission Date: 20050727
  Serious: Yes (Other)
  Sender: FDA-Public Use
  Company Number: None

PATIENT
  Age: 76 Year
  Sex: Female
  Weight: 54.4316 kg

DRUGS (9)
  1. WARFARIN SODIUM [Suspect]
     Indication: AORTIC VALVE DISEASE
     Dosage: 5 MG DAILY
  2. WARFARIN SODIUM [Suspect]
     Indication: MITRAL VALVE DISEASE
     Dosage: 5 MG DAILY
  3. LIPITOR [Concomitant]
  4. LASIX [Concomitant]
  5. NADOLOL [Concomitant]
  6. DIGOXIN [Concomitant]
  7. ZOLOFT [Concomitant]
  8. FOSEMAX [Concomitant]
  9. ZETIA [Concomitant]

REACTIONS (1)
  - INTERNATIONAL NORMALISED RATIO INCREASED [None]
